FAERS Safety Report 8557460-4 (Version None)
Quarter: 2012Q3

REPORT INFORMATION
  Report Type: 
  Country: None (occurrence: None)
  Receive Date: 20120801
  Receipt Date: 20120730
  Transmission Date: 20120928
  Serious: Yes (Death, Hospitalization)
  Sender: FDA-Public Use
  Company Number: BR-B.I. PHARMACEUTICALS,INC./RIDGEFIELD-2012-BR-00853BR

PATIENT
  Age: 74 Year
  Sex: Female

DRUGS (7)
  1. TRAYENTA [Suspect]
     Indication: TYPE 2 DIABETES MELLITUS
     Dosage: 5 MG
     Route: 048
     Dates: start: 20111201, end: 20120201
  2. METFORMIN HYDROCHLORIDE [Concomitant]
     Indication: TYPE 2 DIABETES MELLITUS
     Dosage: 1700 MG
  3. HYDROCHLOROTHIAZIDE [Concomitant]
     Indication: HYPERTENSION
     Dosage: 25 MG
  4. SINVASTATINA [Concomitant]
     Indication: DYSLIPIDAEMIA
  5. ASPIRIN [Concomitant]
  6. LOSARTAN POTASSIUM [Concomitant]
     Indication: HYPERTENSION
     Dosage: 50 MG
  7. SELEGILINA [Concomitant]
     Indication: PARKINSON'S DISEASE

REACTIONS (2)
  - PANCREATITIS [None]
  - NAUSEA [None]
